FAERS Safety Report 14204550 (Version 4)
Quarter: 2018Q1

REPORT INFORMATION
  Report Type: Report from Study
  Country: US (occurrence: US)
  Receive Date: 20171120
  Receipt Date: 20180307
  Transmission Date: 20180508
  Serious: Yes (Hospitalization, Other)
  Sender: FDA-Public Use
  Company Number: US-PFIZER INC-2017447982

PATIENT
  Age: 56 Year
  Sex: Female

DRUGS (5)
  1. IBRANCE [Suspect]
     Active Substance: PALBOCICLIB
     Indication: BREAST CANCER METASTATIC
     Dosage: 125 MG, 1X/DAY
     Route: 048
     Dates: start: 20171010, end: 20171101
  2. IBRANCE [Suspect]
     Active Substance: PALBOCICLIB
     Dosage: 125 MG, 1X/DAY
     Route: 048
     Dates: start: 20171010, end: 20171031
  3. IBRANCE [Suspect]
     Active Substance: PALBOCICLIB
     Dosage: 100 MG, 1X/DAY
     Route: 048
     Dates: start: 20171003
  4. IBRANCE [Suspect]
     Active Substance: PALBOCICLIB
     Dosage: 100 MG, 1X/DAY
     Route: 048
     Dates: start: 20171122
  5. IBRANCE [Suspect]
     Active Substance: PALBOCICLIB
     Dosage: 100 MG, 1X/DAY
     Route: 048
     Dates: start: 20171108

REACTIONS (19)
  - Nausea [Recovered/Resolved]
  - Decreased appetite [Unknown]
  - Muscular weakness [Recovering/Resolving]
  - Constipation [Unknown]
  - Sleep disorder [Unknown]
  - Back pain [Unknown]
  - Paraesthesia [Unknown]
  - Leukopenia [Unknown]
  - Neutropenia [Unknown]
  - Pain [Unknown]
  - Weight decreased [Recovered/Resolved]
  - Rash [Unknown]
  - Asthenia [Unknown]
  - Eye pain [Recovering/Resolving]
  - Eyelid infection [Recovering/Resolving]
  - Cellulitis orbital [Recovered/Resolved]
  - Depressed mood [Unknown]
  - Musculoskeletal stiffness [Unknown]
  - Hypoaesthesia [Unknown]

NARRATIVE: CASE EVENT DATE: 2017
